FAERS Safety Report 13266951 (Version 2)
Quarter: 2017Q1

REPORT INFORMATION
  Report Type: Spontaneous
  Country: US (occurrence: US)
  Receive Date: 20170224
  Receipt Date: 20170228
  Transmission Date: 20170428
  Serious: No
  Sender: FDA-Public Use
  Company Number: US-009507513-1702USA010598

PATIENT
  Sex: Female

DRUGS (1)
  1. INTRON A [Suspect]
     Active Substance: INTERFERON ALFA-2B
     Indication: MALIGNANT MELANOMA
     Dosage: 18 MILLION IU, TIW, EVERY MONDAY, WEDNESDAY, FRIDAY
     Route: 058
     Dates: start: 20161227

REACTIONS (1)
  - Hepatic enzyme abnormal [Unknown]
